FAERS Safety Report 11398279 (Version 2)
Quarter: 2015Q3

REPORT INFORMATION
  Report Type: Report from Study
  Country: MX (occurrence: MX)
  Receive Date: 20150820
  Receipt Date: 20150831
  Transmission Date: 20151125
  Serious: Yes (Death, Life-Threatening, Hospitalization, Disabling)
  Sender: FDA-Public Use
  Company Number: MX-ROCHE-1621906

PATIENT
  Age: 51 Year
  Sex: Female
  Weight: 114.3 kg

DRUGS (5)
  1. CISPLATIN. [Suspect]
     Active Substance: CISPLATIN
     Indication: OESOPHAGEAL ADENOCARCINOMA
     Dosage: LAST DOSE PRIOR TO SERIOUS EVENTS ON 22/JUL/2015.
     Route: 042
     Dates: start: 20150722
  2. DIPHENHYDRAMINE HYDROCHLORIDE. [Concomitant]
     Active Substance: DIPHENHYDRAMINE HYDROCHLORIDE
     Route: 065
     Dates: start: 20150722, end: 20150722
  3. RANITIDINE HYDROCHLORIDE. [Concomitant]
     Active Substance: RANITIDINE HYDROCHLORIDE
     Route: 065
     Dates: start: 20150722, end: 20150722
  4. CAPECITABINE. [Suspect]
     Active Substance: CAPECITABINE
     Indication: OESOPHAGEAL ADENOCARCINOMA
     Dosage: LAST DOSE PRIOR TO SERIOUS EVENTS RECEIVED ON 03/AUG/2015. DISCONTINUED ON 04/AUG/2015
     Route: 048
     Dates: start: 20150722, end: 20150804
  5. APREPITANT. [Concomitant]
     Active Substance: APREPITANT
     Route: 065
     Dates: start: 20150722, end: 20150722

REACTIONS (3)
  - Vomiting [Not Recovered/Not Resolved]
  - Multi-organ failure [Fatal]
  - Neutropenia [Not Recovered/Not Resolved]
